FAERS Safety Report 20839203 (Version 2)
Quarter: 2022Q2

REPORT INFORMATION
  Report Type: Report from Study
  Country: US (occurrence: US)
  Receive Date: 20220517
  Receipt Date: 20220519
  Transmission Date: 20220721
  Serious: No
  Sender: FDA-Public Use
  Company Number: US-NOVARTISTESTPH-NVSC2022US113277

PATIENT
  Age: 58 Year

DRUGS (1)
  1. KESIMPTA [Suspect]
     Active Substance: OFATUMUMAB
     Indication: Product used for unknown indication
     Dosage: UNK
     Route: 065

REACTIONS (8)
  - Hot flush [Unknown]
  - Gait disturbance [Unknown]
  - Chills [Unknown]
  - Pain [Unknown]
  - Pain of skin [Unknown]
  - Decreased appetite [Unknown]
  - Weight decreased [Unknown]
  - Headache [Unknown]

NARRATIVE: CASE EVENT DATE: 20220516
